FAERS Safety Report 6084380-X (Version None)
Quarter: 2009Q1

REPORT INFORMATION
  Report Type: 
  Country: None (occurrence: None)
  Receive Date: 20090219
  Receipt Date: 20090216
  Transmission Date: 20090719
  Serious: Yes (Other)
  Sender: FDA-Public Use
  Company Number: A0768695A

PATIENT

DRUGS (1)
  1. LOVAZA [Suspect]
     Dosage: 4G UNKNOWN
     Route: 048

REACTIONS (1)
  - HAEMORRHAGIC STROKE [None]
